FAERS Safety Report 15209424 (Version 1)
Quarter: 2018Q3

REPORT INFORMATION
  Report Type: Spontaneous
  Country: JP (occurrence: JP)
  Receive Date: 20180727
  Receipt Date: 20180727
  Transmission Date: 20181010
  Serious: Yes (Death)
  Sender: FDA-Public Use
  Company Number: JP-MYLANLABS-2018M1055919

PATIENT
  Age: 5 Decade
  Sex: Male

DRUGS (4)
  1. MYCOPHENOLATE MOFETIL. [Suspect]
     Active Substance: MYCOPHENOLATE MOFETIL
     Indication: PROPHYLAXIS
     Route: 065
  2. PREDNISOLONE. [Suspect]
     Active Substance: PREDNISOLONE
     Indication: IDIOPATHIC INTERSTITIAL PNEUMONIA
     Route: 065
     Dates: start: 200810
  3. METHYLPREDNISOLONE. [Suspect]
     Active Substance: METHYLPREDNISOLONE
     Indication: TRANSPLANT REJECTION
     Dosage: PULSE THERAPY
     Route: 065
  4. CICLOSPORIN [Suspect]
     Active Substance: CYCLOSPORINE
     Indication: IDIOPATHIC INTERSTITIAL PNEUMONIA
     Route: 065
     Dates: start: 200810

REACTIONS (4)
  - Alveolar proteinosis [Fatal]
  - Bronchopulmonary aspergillosis [Fatal]
  - Acute respiratory failure [Fatal]
  - Respiratory disorder [Fatal]

NARRATIVE: CASE EVENT DATE: 201510
